FAERS Safety Report 11515179 (Version 1)
Quarter: 2015Q3

REPORT INFORMATION
  Report Type: Spontaneous
  Country: FR (occurrence: FR)
  Receive Date: 20150916
  Receipt Date: 20150916
  Transmission Date: 20151125
  Serious: Yes (Other)
  Sender: FDA-Public Use
  Company Number: FR-BRISTOL-MYERS SQUIBB COMPANY-BMS-2015-061856

PATIENT
  Sex: Female

DRUGS (1)
  1. HYDREA [Suspect]
     Active Substance: HYDROXYUREA
     Indication: SICKLE CELL ANAEMIA
     Dosage: UNK UNK, QD
     Route: 065
     Dates: start: 201401, end: 201506

REACTIONS (2)
  - Maternal exposure during pregnancy [Unknown]
  - Sickle cell anaemia with crisis [Unknown]
